FAERS Safety Report 6073546-0 (Version None)
Quarter: 2009Q1

REPORT INFORMATION
  Report Type: 
  Country: None (occurrence: None)
  Receive Date: 20090211
  Receipt Date: 20090206
  Transmission Date: 20090719
  Serious: Yes (Hospitalization)
  Sender: FDA-Public Use
  Company Number: FR-WYE-G03075209

PATIENT
  Sex: Female

DRUGS (6)
  1. RHINADVIL [Suspect]
     Indication: NASOPHARYNGITIS
     Route: 048
     Dates: start: 20081229, end: 20090105
  2. ORELOX [Concomitant]
     Dosage: UNKNOWN
     Route: 048
     Dates: start: 20090107, end: 20090108
  3. ROXITHROMYCIN [Suspect]
     Indication: NASOPHARYNGITIS
     Route: 048
     Dates: start: 20081229, end: 20090105
  4. DIMETANE SUGAR FREE [Suspect]
     Indication: NASOPHARYNGITIS
     Dosage: UNKNOWN
     Route: 048
     Dates: start: 20081229, end: 20090105
  5. ABUFENE [Suspect]
     Indication: HOT FLUSH
     Route: 048
     Dates: start: 20081229, end: 20090108
  6. STRESAM [Suspect]
     Indication: ANXIETY
     Route: 048
     Dates: start: 20081229, end: 20090108

REACTIONS (6)
  - CONJUNCTIVAL HYPERAEMIA [None]
  - ENANTHEMA [None]
  - EYELID OEDEMA [None]
  - PUNCTATE KERATITIS [None]
  - RASH MACULO-PAPULAR [None]
  - URTICARIA [None]
